FAERS Safety Report 4834871-1 (Version None)
Quarter: 2005Q4

REPORT INFORMATION
  Report Type: 
  Country: None (occurrence: None)
  Receive Date: 20051115
  Receipt Date: 20051102
  Transmission Date: 20060501
  Serious: Yes (Death)
  Sender: FDA-Public Use
  Company Number: 05H-163-0303451-00

PATIENT
  Sex: Male

DRUGS (1)
  1. MORPHINE SULFATE INJ [Suspect]

REACTIONS (2)
  - DEPRESSED LEVEL OF CONSCIOUSNESS [None]
  - RESUSCITATION [None]
